FAERS Safety Report 4378122-3 (Version None)
Quarter: 2004Q2

REPORT INFORMATION
  Report Type: 
  Country: None (occurrence: None)
  Receive Date: 20040616
  Receipt Date: 20040514
  Transmission Date: 20050107
  Serious: Yes (Other)
  Sender: FDA-Public Use
  Company Number: PHEH2004US05427

PATIENT
  Age: 33 Year
  Sex: Female

DRUGS (4)
  1. TRILEPTAL [Suspect]
     Indication: MOOD SWINGS
     Dosage: 900 MG, QD
     Route: 048
     Dates: start: 20021219
  2. SEROQUEL [Concomitant]
     Indication: BIPOLAR DISORDER
     Dosage: 300 MG, TID
     Route: 048
     Dates: start: 20030127
  3. EFFEXOR [Concomitant]
     Indication: DEPRESSION
     Dosage: 150 MG, QD
     Route: 048
     Dates: start: 20020307
  4. VISTARIL [Concomitant]
     Dosage: 25 MG, TID
     Route: 048
     Dates: start: 20030301

REACTIONS (4)
  - ALANINE AMINOTRANSFERASE INCREASED [None]
  - ASPARTATE AMINOTRANSFERASE INCREASED [None]
  - HEPATIC ENZYME INCREASED [None]
  - HEPATIC STEATOSIS [None]
